FAERS Safety Report 10401511 (Version 1)
Quarter: 2014Q3

REPORT INFORMATION
  Report Type: Spontaneous
  Country: US (occurrence: US)
  Receive Date: 20140822
  Receipt Date: 20140822
  Transmission Date: 20150326
  Serious: Yes (Other)
  Sender: FDA-Public Use
  Company Number: US-AMGEN-USASP2014063215

PATIENT
  Age: 70 Year
  Sex: Male

DRUGS (2)
  1. LUPRON DEPOT [Concomitant]
     Active Substance: LEUPROLIDE ACETATE
     Dosage: UNK UNK, Q6MO
     Route: 065
  2. XGEVA [Suspect]
     Active Substance: DENOSUMAB
     Indication: PRODUCT USED FOR UNKNOWN INDICATION
     Dosage: UNK UNK, Q4WK
     Route: 065
     Dates: start: 201405

REACTIONS (1)
  - Hip arthroplasty [Unknown]
